FAERS Safety Report 4709103-5 (Version None)
Quarter: 2005Q3

REPORT INFORMATION
  Report Type: 
  Country: None (occurrence: None)
  Receive Date: 20050705
  Receipt Date: 20050622
  Transmission Date: 20060218
  Serious: Yes (Hospitalization, Other)
  Sender: FDA-Public Use
  Company Number: 2005091365

PATIENT
  Age: 64 Year
  Sex: Male

DRUGS (22)
  1. TIKOSYN [Suspect]
     Indication: ILL-DEFINED DISORDER
     Dosage: 1000 MCG (500 MCG, 2 IN 1 D), ORAL
     Route: 048
  2. TYLENOL [Concomitant]
  3. LIPITOR [Concomitant]
  4. SOMA [Concomitant]
  5. INTRAVENOUS FLUID (SODIUM CHLORIDE) [Concomitant]
  6. DARVOCET N-100 (DEXTROPROPOXYPHENE NAPSILATE, PARACETAMOL) [Concomitant]
  7. COLACE (DOCUSATE SODIUM) [Concomitant]
  8. ZETIA [Concomitant]
  9. VICODIN [Concomitant]
  10. VISTARIL [Concomitant]
  11. ANCER (ALL OTHER THERAPEUTIC PRODUCTS) [Concomitant]
  12. PREVACID [Concomitant]
  13. MILK OF MAGNESIA TAB [Concomitant]
  14. DEMEROL [Concomitant]
  15. SKELAXIN [Concomitant]
  16. RAMIPRIL [Concomitant]
  17. METOPROLOL TARTRATE [Concomitant]
  18. MORPHINE [Concomitant]
  19. ZOFRAN [Concomitant]
  20. PERCOCET [Concomitant]
  21. HALCION (TRIAOLAM) [Concomitant]
  22. QUININE SULFATE [Concomitant]

REACTIONS (2)
  - ELECTROCARDIOGRAM QT CORRECTED INTERVAL PROLONGED [None]
  - INTERVERTEBRAL DISC PROTRUSION [None]
